FAERS Safety Report 24821879 (Version 1)
Quarter: 2025Q1

REPORT INFORMATION
  Report Type: Spontaneous
  Country: US (occurrence: US)
  Receive Date: 20250108
  Receipt Date: 20250108
  Transmission Date: 20250409
  Serious: No
  Sender: SANOFI AVENTIS
  Company Number: US-SA-2025SA006062

PATIENT
  Age: 63 Year
  Sex: Male
  Weight: 98.18 kg

DRUGS (10)
  1. DUPIXENT [Suspect]
     Active Substance: DUPILUMAB
     Indication: Asthma
     Dosage: 300 MG, QOW
     Route: 058
     Dates: start: 20240103, end: 2024
  2. DEXTROSE\WATER [Concomitant]
     Active Substance: DEXTROSE\WATER
     Route: 042
  3. TYLENOL [Concomitant]
     Active Substance: ACETAMINOPHEN
  4. LENALIDOMIDE [Concomitant]
     Active Substance: LENALIDOMIDE
  5. KYPROLIS [Concomitant]
     Active Substance: CARFILZOMIB
  6. PULMICORT TURBUHALER [Concomitant]
     Active Substance: BUDESONIDE
  7. VALGANCICLOVIR HYDROCHLORIDE [Concomitant]
     Active Substance: VALGANCICLOVIR HYDROCHLORIDE
  8. SINGULAIR [Concomitant]
     Active Substance: MONTELUKAST SODIUM
  9. ARFORMOTEROL TARTRATE [Concomitant]
     Active Substance: ARFORMOTEROL TARTRATE
  10. ALBUTEROL SULFATE [Concomitant]
     Active Substance: ALBUTEROL SULFATE

REACTIONS (1)
  - Influenza [Unknown]

NARRATIVE: CASE EVENT DATE: 20240101
